FAERS Safety Report 9739366 (Version 2)
Quarter: 2013Q4

REPORT INFORMATION
  Report Type: Spontaneous
  Country: US (occurrence: US)
  Receive Date: 20131209
  Receipt Date: 20131209
  Transmission Date: 20140711
  Serious: Yes (Hospitalization)
  Sender: FDA-Public Use
  Company Number: US-GLAXOSMITHKLINE-A0942039A

PATIENT
  Age: 76 Year
  Sex: Male
  Weight: 95.5 kg

DRUGS (8)
  1. AVANDAMET [Suspect]
     Indication: TYPE 2 DIABETES MELLITUS
     Route: 048
     Dates: start: 200503, end: 20050801
  2. AVANDIA [Suspect]
     Indication: TYPE 2 DIABETES MELLITUS
     Route: 048
     Dates: start: 20050801
  3. ATENOLOL [Concomitant]
  4. NORVASC [Concomitant]
  5. COZAAR [Concomitant]
  6. DIGOXIN [Concomitant]
  7. COUMADIN [Concomitant]
  8. VYTORIN [Concomitant]

REACTIONS (1)
  - Cardiac failure congestive [Recovering/Resolving]
